FAERS Safety Report 8452344-4 (Version None)
Quarter: 2012Q2

REPORT INFORMATION
  Report Type: 
  Country: None (occurrence: None)
  Receive Date: 20120620
  Receipt Date: 20120613
  Transmission Date: 20120825
  Serious: Yes (Life-Threatening, Hospitalization, Other)
  Sender: FDA-Public Use
  Company Number: DE-UCBSA-059669

PATIENT
  Sex: Female
  Weight: 114 kg

DRUGS (8)
  1. METHOTREXATE [Concomitant]
     Route: 048
     Dates: start: 20111019
  2. PREDNISOLONE [Concomitant]
     Route: 048
     Dates: start: 20111106
  3. FEXOFENADIN [Concomitant]
     Indication: PRURITUS
     Route: 048
     Dates: start: 20110801
  4. CIMZIA [Suspect]
     Indication: RHEUMATOID ARTHRITIS
     Dates: start: 20110618
  5. MELOXICAM [Concomitant]
     Indication: RHEUMATOID ARTHRITIS
     Route: 048
     Dates: start: 20110609
  6. METHOTREXATE [Concomitant]
     Indication: RHEUMATOID ARTHRITIS
     Route: 048
     Dates: start: 19930101, end: 19930101
  7. PREDNISOLONE [Concomitant]
     Indication: RHEUMATOID ARTHRITIS
     Route: 048
     Dates: start: 20110906, end: 20111105
  8. METHOTREXATE [Concomitant]
     Route: 058
     Dates: start: 20011206, end: 20011220

REACTIONS (2)
  - BREAST CANCER [None]
  - OVARIAN CANCER METASTATIC [None]
